FAERS Safety Report 7365161-3 (Version None)
Quarter: 2011Q1

REPORT INFORMATION
  Report Type: 
  Country: None (occurrence: None)
  Receive Date: 20110321
  Receipt Date: 20110314
  Transmission Date: 20110831
  Serious: Yes (Death, Other)
  Sender: FDA-Public Use
  Company Number: US-RB-023902-11

PATIENT
  Age: 22 Year
  Sex: Male

DRUGS (4)
  1. HEROIN [Suspect]
     Indication: PRODUCT USED FOR UNKNOWN INDICATION
     Route: 065
  2. MARIJUANA [Suspect]
     Indication: PRODUCT USED FOR UNKNOWN INDICATION
     Dosage: DOSING INFORMATION UNKNOWN
     Route: 065
  3. SUBOXONE [Suspect]
     Indication: DRUG DEPENDENCE
     Dosage: SUBLINGUAL FILM
     Route: 060
     Dates: start: 20101209, end: 20110311
  4. MORPHINE [Suspect]
     Indication: PRODUCT USED FOR UNKNOWN INDICATION
     Dosage: DOSING INFORMATION UNKNOWN
     Route: 065

REACTIONS (2)
  - VENTRICULAR FIBRILLATION [None]
  - SUBSTANCE ABUSE [None]
